FAERS Safety Report 17200834 (Version 1)
Quarter: 2019Q4

REPORT INFORMATION
  Report Type: Spontaneous
  Country: BD (occurrence: BD)
  Receive Date: 20191226
  Receipt Date: 20191226
  Transmission Date: 20200122
  Serious: Yes (Life-Threatening, Hospitalization, Other)
  Sender: FDA-Public Use
  Company Number: BD-GLAXOSMITHKLINE-BD2019234807

PATIENT
  Age: 27 Year
  Sex: Female

DRUGS (1)
  1. VOLTALINE [Suspect]
     Active Substance: DICLOFENAC SODIUM
     Indication: PROCEDURAL PAIN
     Dosage: 2 MG/KG, Q12H
     Route: 054
     Dates: start: 20191205, end: 20191208

REACTIONS (1)
  - Acute kidney injury [Not Recovered/Not Resolved]

NARRATIVE: CASE EVENT DATE: 20191207
